FAERS Safety Report 21879678 (Version 1)
Quarter: 2023Q1

REPORT INFORMATION
  Report Type: Spontaneous
  Country: UY (occurrence: UY)
  Receive Date: 20230118
  Receipt Date: 20230118
  Transmission Date: 20230417
  Serious: Yes (Other)
  Sender: FDA-Public Use
  Company Number: UY-TEVA-2023-UY-2842834

PATIENT
  Age: 34 Year
  Sex: Female
  Weight: 65 kg

DRUGS (2)
  1. METHOTREXATE [Suspect]
     Active Substance: METHOTREXATE
     Indication: Psoriasis
     Dosage: THE SUSPECT MEDICATION WAS TAKEN BY THE FATHER, 7.5 MG/3 TIMES A WEEK,
     Route: 065
     Dates: start: 202210, end: 202212
  2. HUMIRA [Concomitant]
     Active Substance: ADALIMUMAB
     Indication: Product used for unknown indication
     Dates: end: 202210

REACTIONS (2)
  - Abortion spontaneous [Unknown]
  - Paternal exposure timing unspecified [Unknown]

NARRATIVE: CASE EVENT DATE: 20221101
